FAERS Safety Report 7178260-6 (Version None)
Quarter: 2010Q4

REPORT INFORMATION
  Report Type: 
  Country: None (occurrence: None)
  Receive Date: 20101220
  Receipt Date: 20101203
  Transmission Date: 20110411
  Serious: No
  Sender: FDA-Public Use
  Company Number: JP-ELI_LILLY_AND_COMPANY-JP201012001077

PATIENT
  Age: 19 Year

DRUGS (1)
  1. ZYPREXA [Suspect]
     Dosage: 2.5 MG, DAILY (1/D)
     Route: 048

REACTIONS (3)
  - EPISTAXIS [None]
  - MALAISE [None]
  - NASOPHARYNGITIS [None]
